FAERS Safety Report 11965589 (Version 1)
Quarter: 2016Q1

REPORT INFORMATION
  Report Type: Spontaneous
  Country: US (occurrence: None)
  Receive Date: 20160125
  Receipt Date: 20160125
  Transmission Date: 20160526
  Serious: Yes (Disabling, Other)
  Sender: FDA-Public Use
  Company Number: None

PATIENT
  Age: 32 Year
  Sex: Female
  Weight: 129.28 kg

DRUGS (7)
  1. ZANTAC [Concomitant]
     Active Substance: RANITIDINE HYDROCHLORIDE
  2. CAMOMILE EXTRACT [Concomitant]
     Active Substance: CAMOMILE EXTRACT
  3. MYLANTA [Concomitant]
     Active Substance: ALUMINUM HYDROXIDE\DIMETHICONE\MAGNESIUM HYDROXIDE
  4. MOTRIN [Concomitant]
     Active Substance: IBUPROFEN
  5. XANAX [Concomitant]
     Active Substance: ALPRAZOLAM
  6. VITAMIN B12 [Concomitant]
     Active Substance: CYANOCOBALAMIN
  7. MIRENA [Suspect]
     Active Substance: LEVONORGESTREL

REACTIONS (9)
  - Dyspnoea [None]
  - Anxiety [None]
  - Paraesthesia [None]
  - Palpitations [None]
  - Depression [None]
  - Hypoaesthesia [None]
  - Chest pain [None]
  - Alopecia [None]
  - Weight increased [None]
